FAERS Safety Report 20951557 (Version 1)
Quarter: 2022Q2

REPORT INFORMATION
  Report Type: Spontaneous
  Country: US (occurrence: None)
  Receive Date: 20220613
  Receipt Date: 20220613
  Transmission Date: 20220721
  Serious: No
  Sender: FDA-Public Use
  Company Number: None

PATIENT
  Sex: Female

DRUGS (1)
  1. RINVOQ [Suspect]
     Active Substance: UPADACITINIB
     Indication: Colitis
     Dosage: 45MG DAILY ORALLY?
     Route: 048

REACTIONS (4)
  - Headache [None]
  - Dizziness [None]
  - Drug ineffective [None]
  - Condition aggravated [None]
